FAERS Safety Report 5014746-8 (Version None)
Quarter: 2006Q2

REPORT INFORMATION
  Report Type: 
  Country: None (occurrence: None)
  Receive Date: 20060531
  Receipt Date: 20060525
  Transmission Date: 20061013
  Serious: Yes (Life-Threatening)
  Sender: FDA-Public Use
  Company Number: 00206001571

PATIENT
  Age: 66 Year
  Sex: Female

DRUGS (8)
  1. AMOXIL [Suspect]
     Dosage: 2G PER DAY
     Route: 048
     Dates: end: 20050815
  2. COVERSYL [Suspect]
     Dosage: 4MG PER DAY
     Route: 048
     Dates: end: 20050815
  3. THYROXINE SODIUM [Concomitant]
  4. ASPIRIN [Concomitant]
  5. DILTIAZEM [Concomitant]
  6. CELECOXIB [Concomitant]
  7. ESTROGEN (CONJUGATED ESTROGEN) [Concomitant]
  8. ATORVASTATIN CALCIUM [Concomitant]

REACTIONS (1)
  - ANGIONEUROTIC OEDEMA [None]
